FAERS Safety Report 4374373-2 (Version None)
Quarter: 2004Q2

REPORT INFORMATION
  Report Type: 
  Country: None (occurrence: None)
  Receive Date: 20040603
  Receipt Date: 20040513
  Transmission Date: 20050107
  Serious: Yes (Life-Threatening, Hospitalization)
  Sender: FDA-Public Use
  Company Number: FR_040504116

PATIENT
  Age: 62 Year
  Sex: Male

DRUGS (1)
  1. GEMZAR [Suspect]
     Indication: PANCREATIC CARCINOMA
     Dosage: 600 M G/M2 OTHER
     Route: 050
     Dates: start: 20040211, end: 20040211

REACTIONS (6)
  - CHEST DISCOMFORT [None]
  - DYSPNOEA [None]
  - MITRAL VALVE DISEASE [None]
  - SYNCOPE [None]
  - TROPONIN INCREASED [None]
  - VENTRICULAR TACHYCARDIA [None]
